FAERS Safety Report 5022700-5 (Version None)
Quarter: 2006Q2

REPORT INFORMATION
  Report Type: 
  Country: None (occurrence: None)
  Receive Date: 20060605
  Receipt Date: 20060522
  Transmission Date: 20061013
  Serious: Yes (Death, Other)
  Sender: FDA-Public Use
  Company Number: FR200605004348

PATIENT
  Age: 53 Year
  Sex: Male
  Weight: 88 kg

DRUGS (17)
  1. XIGRIS [Suspect]
     Indication: SEPTIC SHOCK
     Dosage: INTRAVENOUS
     Route: 042
     Dates: start: 20060127, end: 20060129
  2. ASPEGIC 1000 [Concomitant]
  3. HYDROCORTISONE [Concomitant]
  4. NIMBEX [Concomitant]
  5. INSULIN [Concomitant]
  6. PERFALGAN (PARACETAMOL) [Concomitant]
  7. ALPRAZOLAM [Concomitant]
  8. LIORESAL [Concomitant]
  9. EZETROL (EZETIMIBE) [Concomitant]
  10. ACETAMINOPHEN W/ PROPOXYPHENE HCL [Concomitant]
  11. AUGMENTIN '250' [Concomitant]
  12. LEVOFLOXACIN [Concomitant]
  13. GENTAMICIN [Concomitant]
  14. MIDAZOLAM HCL [Concomitant]
  15. FENTANYL TRANSDERMAL SYSTEM [Concomitant]
  16. NORADRENALINE (NOREPINEPHRINE) [Concomitant]
  17. AMOXICILLIN TRIHYDRATE [Concomitant]

REACTIONS (6)
  - CEREBRAL HAEMORRHAGE [None]
  - DRUG INTERACTION [None]
  - EPISTAXIS [None]
  - HAEMORRHAGE [None]
  - MENINGORRHAGIA [None]
  - MULTI-ORGAN FAILURE [None]
